FAERS Safety Report 4291406-2 (Version None)
Quarter: 2004Q1

REPORT INFORMATION
  Report Type: 
  Country: None (occurrence: None)
  Receive Date: 20040211
  Receipt Date: 20030911
  Transmission Date: 20041129
  Serious: No
  Sender: FDA-Public Use
  Company Number: US-BRISTOL-MYERS SQUIBB COMPANY-12381083

PATIENT
  Age: 7 Year
  Sex: Female

DRUGS (1)
  1. CEFZIL [Suspect]
     Dosage: 250 MG/5 ML 100ML BOTTLE  DOSE GIVEN-1 TEASPOON UNRECONSTITUTED POWDER.
     Route: 048

REACTIONS (2)
  - MEDICATION ERROR [None]
  - OVERDOSE [None]
